FAERS Safety Report 5018833-X (Version None)
Quarter: 2006Q2

REPORT INFORMATION
  Report Type: 
  Country: None (occurrence: None)
  Receive Date: 20060530
  Receipt Date: 20060515
  Transmission Date: 20061013
  Serious: Yes (Other)
  Sender: FDA-Public Use
  Company Number: 224056

PATIENT
  Age: 63 Year
  Sex: Male
  Weight: 53.5 kg

DRUGS (16)
  1. AVASTIN [Suspect]
     Indication: COLORECTAL CANCER METASTATIC
     Dosage: 5 MG/KG, Q2W, INTRAVENOUS
     Route: 042
     Dates: start: 20050601, end: 20051116
  2. AVASTIN [Suspect]
     Indication: COLORECTAL CANCER METASTATIC
     Dosage: 5 MG/KG, Q2W, INTRAVENOUS
     Route: 042
     Dates: start: 20060113
  3. FLUOROURACIL [Concomitant]
  4. GEMCITABINE [Concomitant]
  5. ARANESP [Concomitant]
  6. RITALIN [Concomitant]
  7. ALBUTEROL (ALBUTEROL/ALBUTEROL SULFATE) [Concomitant]
  8. FLOVENT [Concomitant]
  9. THEOLAIR-SR (THEOPHYLLINE) [Concomitant]
  10. DILAUDID [Concomitant]
  11. REGLAN [Concomitant]
  12. PREDNISONE TAB [Concomitant]
  13. PREVACID [Concomitant]
  14. PHENERGAN (PROMETHAZINE HYDROCHLORIDE) [Concomitant]
  15. SENOKOT [Concomitant]
  16. FOSAMAX [Concomitant]

REACTIONS (6)
  - BLOOD PRESSURE INCREASED [None]
  - DIPLOPIA [None]
  - DIZZINESS [None]
  - HAEMOGLOBIN DECREASED [None]
  - PERICARDIAL EFFUSION [None]
  - PLATELET COUNT INCREASED [None]
